FAERS Safety Report 8815316 (Version 1)
Quarter: 2012Q4

REPORT INFORMATION
  Report Type: 
  Country: QA (occurrence: QA)
  Receive Date: 20120928
  Receipt Date: 20120928
  Transmission Date: 20130627
  Serious: Yes (Hospitalization)
  Sender: FDA-Public Use
  Company Number: QA-ASTRAZENECA-2012SE73156

PATIENT
  Age: 60 Year
  Sex: Female

DRUGS (9)
  1. OMEPRAZOLE [Suspect]
     Indication: PEPTIC ULCER
     Route: 048
  2. ATORVASTATIN [Interacting]
     Indication: HYPERLIPIDAEMIA
  3. DEXAMETHASONE [Interacting]
     Indication: SPINAL CORD COMPRESSION
  4. DEXAMETHASONE [Interacting]
     Indication: SPINAL CORD COMPRESSION
  5. TRAMADOL [Concomitant]
     Indication: CANCER PAIN
  6. CALCIUM CARBONATE [Concomitant]
  7. CELECOXIB [Concomitant]
     Indication: BONE PAIN
  8. GABAPENTIN [Concomitant]
     Indication: NEURALGIA
  9. BISACODYL [Concomitant]
     Indication: CONSTIPATION

REACTIONS (2)
  - Drug interaction [Unknown]
  - Rhabdomyolysis [Unknown]
